FAERS Safety Report 6185510-1 (Version None)
Quarter: 2009Q2

REPORT INFORMATION
  Report Type: 
  Country: None (occurrence: None)
  Receive Date: 20090511
  Receipt Date: 20090506
  Transmission Date: 20091009
  Serious: Yes (Hospitalization)
  Sender: FDA-Public Use
  Company Number: US-ASTRAZENECA-2009UW11445

PATIENT
  Age: 70 Year
  Sex: Male

DRUGS (13)
  1. CRESTOR [Suspect]
     Route: 048
     Dates: start: 20071101, end: 20080401
  2. CRESTOR [Suspect]
     Route: 048
     Dates: start: 20080401
  3. METOPROLOL TARTRATE [Concomitant]
  4. PREVACID [Concomitant]
  5. MULTI-VITAMIN [Concomitant]
  6. VITAMIN B-12 [Concomitant]
  7. VITAMIN B6 [Concomitant]
  8. CLONAZEPAM [Concomitant]
  9. HUMALYN R-15 [Concomitant]
  10. HUMALOG [Concomitant]
  11. NIASPAN [Concomitant]
  12. LOTREL [Concomitant]
  13. ASPIRIN [Concomitant]

REACTIONS (10)
  - ALANINE AMINOTRANSFERASE INCREASED [None]
  - ASPARTATE AMINOTRANSFERASE INCREASED [None]
  - BLOOD CREATINE PHOSPHOKINASE INCREASED [None]
  - BLOOD CREATININE INCREASED [None]
  - DRUG DISPENSING ERROR [None]
  - HAEMATURIA [None]
  - LIVER FUNCTION TEST ABNORMAL [None]
  - PROTEINURIA [None]
  - RENAL FAILURE ACUTE [None]
  - WRONG TECHNIQUE IN DRUG USAGE PROCESS [None]
